FAERS Safety Report 19849594 (Version 1)
Quarter: 2021Q3

REPORT INFORMATION
  Report Type: Spontaneous
  Country: GR (occurrence: GR)
  Receive Date: 20210917
  Receipt Date: 20210917
  Transmission Date: 20211014
  Serious: Yes (Other)
  Sender: FDA-Public Use
  Company Number: GR-AMGEN-GRCSP2021141527

PATIENT
  Age: 39 Year
  Sex: Male

DRUGS (5)
  1. XGEVA [Suspect]
     Active Substance: DENOSUMAB
     Indication: PARATHYROID TUMOUR BENIGN
     Dosage: 120 MILLIGRAM, QMO
     Route: 065
  2. XGEVA [Suspect]
     Active Substance: DENOSUMAB
     Indication: OFF LABEL USE
  3. CINACALCET HCL [Suspect]
     Active Substance: CINACALCET HYDROCHLORIDE
     Indication: HYPERPARATHYROIDISM SECONDARY
     Dosage: 270 MILLIGRAM, QD
     Route: 065
  4. RISEDRONATE [Concomitant]
     Active Substance: RISEDRONATE SODIUM
  5. XGEVA [Suspect]
     Active Substance: DENOSUMAB
     Indication: HYPERCALCAEMIA

REACTIONS (6)
  - Off label use [Unknown]
  - Hypercalcaemia [Recovered/Resolved]
  - Hyperparathyroidism [Recovered/Resolved]
  - Parathyroid tumour malignant [Recovered/Resolved]
  - Therapy non-responder [Unknown]
  - Oropharyngeal surgery [Unknown]
